FAERS Safety Report 6241720-6 (Version None)
Quarter: 2009Q2

REPORT INFORMATION
  Report Type: 
  Country: None (occurrence: None)
  Receive Date: 20090623
  Receipt Date: 20070419
  Transmission Date: 20091009
  Serious: Yes (Hospitalization, Other)
  Sender: FDA-Public Use
  Company Number: JP-ROCHE-493929

PATIENT
  Age: 54 Year
  Sex: Male

DRUGS (2)
  1. MEFLOQUINE HYDROCHLORIDE [Suspect]
     Indication: MALARIA
     Route: 048
     Dates: start: 20051104
  2. ARTESUNATE [Concomitant]
     Indication: MALARIA
     Route: 042

REACTIONS (3)
  - HAEMOLYTIC ANAEMIA [None]
  - NERVOUS SYSTEM DISORDER [None]
  - URINARY TRACT INFECTION [None]
